FAERS Safety Report 6188539-2 (Version None)
Quarter: 2009Q2

REPORT INFORMATION
  Report Type: 
  Country: None (occurrence: None)
  Receive Date: 20090513
  Receipt Date: 20090430
  Transmission Date: 20091009
  Serious: Yes (Hospitalization)
  Sender: FDA-Public Use
  Company Number: FR-AMGEN-US341458

PATIENT
  Sex: Female
  Weight: 85 kg

DRUGS (7)
  1. ENBREL [Suspect]
     Indication: PSORIATIC ARTHROPATHY
     Route: 058
     Dates: start: 20070101, end: 20090324
  2. LIPANTHYL [Concomitant]
     Dosage: UNKNOWN
     Route: 048
  3. SPIRIVA [Concomitant]
     Dosage: UNKNOWN
     Dates: start: 20090101
  4. ENDOTELON [Concomitant]
     Route: 048
     Dates: start: 20080101
  5. SYMBICORT [Concomitant]
     Dosage: UNKNOWN
     Dates: start: 20090101
  6. METHOTREXATE [Concomitant]
     Indication: PSORIATIC ARTHROPATHY
     Route: 048
     Dates: start: 20040101
  7. VASTAREL [Concomitant]
     Route: 048
     Dates: start: 20080101

REACTIONS (1)
  - OEDEMATOUS PANCREATITIS [None]
